FAERS Safety Report 5905648-0 (Version None)
Quarter: 2008Q4

REPORT INFORMATION
  Report Type: 
  Country: None (occurrence: None)
  Receive Date: 20081002
  Receipt Date: 20080923
  Transmission Date: 20090506
  Serious: Yes (Hospitalization, Other)
  Sender: FDA-Public Use
  Company Number: GB-JNJFOC-20080905664

PATIENT
  Sex: Female
  Weight: 62 kg

DRUGS (5)
  1. REMICADE [Suspect]
     Route: 042
  2. REMICADE [Suspect]
     Indication: RHEUMATOID ARTHRITIS
     Route: 042
  3. HYDROXYCHLOROQUINE [Concomitant]
  4. METHOTREXATE [Concomitant]
  5. SULFASALAZINE [Concomitant]

REACTIONS (1)
  - ENDOMETRIAL CANCER [None]
